FAERS Safety Report 25133456 (Version 1)
Quarter: 2025Q1

REPORT INFORMATION
  Report Type: Report from Study
  Country: CA (occurrence: CA)
  Receive Date: 20250328
  Receipt Date: 20250328
  Transmission Date: 20250409
  Serious: Yes (Other)
  Sender: TAKEDA
  Company Number: CA-TAKEDA-2025TUS029401

PATIENT
  Age: 51 Year
  Sex: Female

DRUGS (23)
  1. VEDOLIZUMAB [Suspect]
     Active Substance: VEDOLIZUMAB
     Indication: Crohn^s disease
  2. VEDOLIZUMAB [Suspect]
     Active Substance: VEDOLIZUMAB
     Dosage: 300 MILLIGRAM, Q4WEEKS
     Dates: start: 20180921
  3. BACLOFEN [Suspect]
     Active Substance: BACLOFEN
     Indication: Back pain
     Dosage: UNK, TID
  4. LAMOTRIGINE [Concomitant]
     Active Substance: LAMOTRIGINE
     Dosage: 150 MILLIGRAM, QD
  5. ARIPIPRAZOLE [Concomitant]
     Active Substance: ARIPIPRAZOLE
     Dosage: 15 MILLIGRAM, QD
  6. GLICLAZIDE [Concomitant]
     Active Substance: GLICLAZIDE
     Dosage: 80 MILLIGRAM, BID
  7. METOPROLOL [Concomitant]
     Active Substance: METOPROLOL
     Dosage: 25 MILLIGRAM, QD
  8. CLONAZEPAM [Concomitant]
     Active Substance: CLONAZEPAM
     Dosage: 0.25 MILLIGRAM, TID
  9. SYNTHROID [Concomitant]
     Active Substance: LEVOTHYROXINE SODIUM
     Dosage: 150 MILLIGRAM, QD
  10. CETIRIZINE [Concomitant]
     Active Substance: CETIRIZINE HYDROCHLORIDE
     Dosage: 20 MILLIGRAM, QD
  11. ESCITALOPRAM [Concomitant]
     Active Substance: ESCITALOPRAM OXALATE
  12. DICLOFENAC [Concomitant]
     Active Substance: DICLOFENAC
     Dosage: 50 MILLIGRAM, BID
     Dates: start: 20230227
  13. QUETIAPINE [Concomitant]
     Active Substance: QUETIAPINE
  14. ATORVASTATIN [Concomitant]
     Active Substance: ATORVASTATIN
     Dosage: 80 MILLIGRAM, QD
  15. ACETAMINOPHEN\TRAMADOL [Concomitant]
     Active Substance: ACETAMINOPHEN\TRAMADOL
     Dosage: 37.5 MILLIGRAM, QD
  16. ATIVAN [Concomitant]
     Active Substance: LORAZEPAM
  17. HUMALOG [Concomitant]
     Active Substance: INSULIN LISPRO
  18. TOUJEO [Concomitant]
     Active Substance: INSULIN GLARGINE
  19. DAPAGLIFLOZIN [Concomitant]
     Active Substance: DAPAGLIFLOZIN
     Dosage: 10 MILLIGRAM, QD
  20. PRAMIPEXOLE [Concomitant]
     Active Substance: PRAMIPEXOLE
     Dosage: 0.25 MILLIGRAM, QD
  21. AMITRIPTYLINE [Concomitant]
     Active Substance: AMITRIPTYLINE
     Dosage: 10 MILLIGRAM, QD
  22. PREGABALIN [Concomitant]
     Active Substance: PREGABALIN
  23. PREDNISONE [Concomitant]
     Active Substance: PREDNISONE

REACTIONS (4)
  - Somnolence [Recovering/Resolving]
  - Back pain [Recovering/Resolving]
  - Fatigue [Recovering/Resolving]
  - Off label use [Unknown]

NARRATIVE: CASE EVENT DATE: 20180921
